FAERS Safety Report 11775749 (Version 3)
Quarter: 2016Q3

REPORT INFORMATION
  Report Type: Spontaneous
  Country: US (occurrence: US)
  Receive Date: 20151125
  Receipt Date: 20160830
  Transmission Date: 20161109
  Serious: No
  Sender: FDA-Public Use
  Company Number: US-JNJFOC-20151103437

PATIENT
  Age: 17 Year
  Sex: Male

DRUGS (11)
  1. RISPERDAL [Suspect]
     Active Substance: RISPERIDONE
     Indication: IMPULSIVE BEHAVIOUR
     Route: 048
     Dates: start: 201208, end: 201209
  2. RISPERDAL [Suspect]
     Active Substance: RISPERIDONE
     Indication: IRRITABILITY
     Route: 048
     Dates: start: 201209, end: 201211
  3. RISPERIDONE. [Suspect]
     Active Substance: RISPERIDONE
     Indication: PRODUCT USED FOR UNKNOWN INDICATION
     Route: 048
  4. RISPERDAL [Suspect]
     Active Substance: RISPERIDONE
     Indication: DRUG THERAPY
     Route: 048
     Dates: start: 201208, end: 201209
  5. RISPERDAL [Suspect]
     Active Substance: RISPERIDONE
     Indication: IRRITABILITY
     Route: 048
     Dates: start: 201208, end: 201209
  6. RISPERDAL [Suspect]
     Active Substance: RISPERIDONE
     Indication: AGITATION
     Route: 048
     Dates: start: 201208, end: 201209
  7. RISPERDAL [Suspect]
     Active Substance: RISPERIDONE
     Indication: ATTENTION DEFICIT/HYPERACTIVITY DISORDER
     Route: 048
     Dates: start: 201208, end: 201209
  8. RISPERDAL [Suspect]
     Active Substance: RISPERIDONE
     Indication: DRUG THERAPY
     Route: 048
     Dates: start: 201209, end: 201211
  9. RISPERDAL [Suspect]
     Active Substance: RISPERIDONE
     Indication: IMPULSIVE BEHAVIOUR
     Route: 048
     Dates: start: 201209, end: 201211
  10. RISPERDAL [Suspect]
     Active Substance: RISPERIDONE
     Indication: AGITATION
     Route: 048
     Dates: start: 201209, end: 201211
  11. RISPERDAL [Suspect]
     Active Substance: RISPERIDONE
     Indication: ATTENTION DEFICIT/HYPERACTIVITY DISORDER
     Route: 048
     Dates: start: 201209, end: 201211

REACTIONS (4)
  - Weight increased [Unknown]
  - Gynaecomastia [Unknown]
  - Product use issue [Unknown]
  - Off label use [Unknown]

NARRATIVE: CASE EVENT DATE: 201208
